FAERS Safety Report 9158847 (Version 2)
Quarter: 2013Q2

REPORT INFORMATION
  Report Type: Spontaneous
  Country: AU (occurrence: AU)
  Receive Date: 20130313
  Receipt Date: 20130410
  Transmission Date: 20140414
  Serious: Yes (Death, Other)
  Sender: FDA-Public Use
  Company Number: AU-B.I. PHARMACEUTICALS,INC./RIDGEFIELD-2013-AU-00266AU

PATIENT
  Sex: Male
  Weight: 99 kg

DRUGS (6)
  1. PRADAXA [Suspect]
     Indication: CEREBROVASCULAR ACCIDENT
     Dates: start: 20110708
  2. PRADAXA [Suspect]
     Indication: ATRIAL FIBRILLATION
  3. LIPIDIL [Concomitant]
  4. STILNOX [Concomitant]
  5. AMIODARONE [Concomitant]
     Indication: ATRIAL FIBRILLATION
  6. KENACOMB [Concomitant]

REACTIONS (2)
  - Death [Fatal]
  - Accident [Unknown]
